FAERS Safety Report 21363433 (Version 2)
Quarter: 2022Q3

REPORT INFORMATION
  Report Type: Report from Study
  Country: US (occurrence: US)
  Receive Date: 20220922
  Receipt Date: 20220927
  Transmission Date: 20221027
  Serious: No
  Sender: FDA-Public Use
  Company Number: US-NOVARTISTESTPH-NVSC2022US213803

PATIENT
  Sex: Male

DRUGS (2)
  1. COSENTYX [Suspect]
     Active Substance: SECUKINUMAB
     Indication: Ankylosing spondylitis
     Dosage: 300 MG, QMO
     Route: 058
     Dates: start: 202206
  2. COSENTYX [Suspect]
     Active Substance: SECUKINUMAB
     Indication: Axial spondyloarthritis

REACTIONS (9)
  - Scratch [Unknown]
  - Infection [Recovering/Resolving]
  - Erythema [Unknown]
  - Swelling [Unknown]
  - Pain [Unknown]
  - Inflammation [Unknown]
  - Bursitis [Unknown]
  - Arthralgia [Unknown]
  - Tendon rupture [Unknown]
